FAERS Safety Report 14716982 (Version 1)
Quarter: 2018Q2

REPORT INFORMATION
  Report Type: Spontaneous
  Country: US (occurrence: US)
  Receive Date: 20180404
  Receipt Date: 20180404
  Transmission Date: 20180711
  Serious: No
  Sender: FDA-Public Use
  Company Number: US-SHIRE-US201812289

PATIENT
  Age: 34 Year
  Sex: Female

DRUGS (1)
  1. XIIDRA [Suspect]
     Active Substance: LIFITEGRAST
     Indication: DRY EYE
     Dosage: 1 GTT, 2X/DAY:BID
     Route: 047
     Dates: start: 20180322, end: 20180325

REACTIONS (4)
  - Swelling [Recovered/Resolved]
  - Instillation site erythema [Recovered/Resolved]
  - Swelling face [Recovered/Resolved]
  - Instillation site pruritus [Recovered/Resolved]

NARRATIVE: CASE EVENT DATE: 20180322
